FAERS Safety Report 5059750-9 (Version None)
Quarter: 2006Q2

REPORT INFORMATION
  Report Type: 
  Country: None (occurrence: None)
  Receive Date: 20060629
  Receipt Date: 20060323
  Transmission Date: 20061013
  Serious: Yes (Other)
  Sender: FDA-Public Use
  Company Number: PHEH2006US02993

PATIENT
  Age: 84 Year
  Sex: Female
  Weight: 89.3 kg

DRUGS (4)
  1. ENABLEX [Suspect]
     Indication: HYPERTONIC BLADDER
     Dosage: 7.5 MG QD
     Dates: start: 20051201
  2. PHENYLEPHRINE (PHENYLEPHRINE) [Concomitant]
  3. CODEINE (CODEINE) [Concomitant]
  4. BACTRIM DS [Concomitant]

REACTIONS (2)
  - BLOOD PRESSURE SYSTOLIC INCREASED [None]
  - DRUG INEFFECTIVE [None]
